FAERS Safety Report 6173340-6 (Version None)
Quarter: 2009Q2

REPORT INFORMATION
  Report Type: 
  Country: None (occurrence: None)
  Receive Date: 20090428
  Receipt Date: 20090413
  Transmission Date: 20091009
  Serious: Yes (Hospitalization, Other)
  Sender: FDA-Public Use
  Company Number: 2009000271

PATIENT
  Age: 57 Year
  Sex: Female

DRUGS (2)
  1. TARCEVA [Suspect]
     Indication: BRONCHIAL CARCINOMA
     Dosage: (150 MG,QD),ORAL
     Route: 048
     Dates: start: 20081015, end: 20090205
  2. ARIXTRA [Concomitant]

REACTIONS (6)
  - METASTASES TO PERITONEUM [None]
  - METRORRHAGIA [None]
  - NECROSIS [None]
  - TUMOUR NECROSIS [None]
  - URETERAL NECROSIS [None]
  - UTERINE DISORDER [None]
